FAERS Safety Report 9015338 (Version 1)
Quarter: 2013Q1

REPORT INFORMATION
  Report Type: Spontaneous
  Country: US (occurrence: US)
  Receive Date: 20130116
  Receipt Date: 20130116
  Transmission Date: 20140127
  Serious: Yes (Hospitalization)
  Sender: FDA-Public Use
  Company Number: US-BAYER-2013-003885

PATIENT
  Age: 36 Year
  Sex: Female
  Weight: 68 kg

DRUGS (3)
  1. YAZ [Suspect]
  2. METHOCARBAMOL [METHOCARBAMOL] [Concomitant]
     Dosage: 500 MG, 1 EVERY 6-8 HOURS AS NEEDED
  3. ULTRAM [Concomitant]
     Indication: PAIN
     Dosage: 50 MG, 1 TABLET  EVERY 6 HOURS AS NEEDED

REACTIONS (1)
  - Pulmonary embolism [Recovering/Resolving]
